FAERS Safety Report 9911753 (Version 2)
Quarter: 2014Q4

REPORT INFORMATION
  Report Type: Spontaneous
  Country: MX (occurrence: MX)
  Receive Date: 20140219
  Receipt Date: 20141117
  Transmission Date: 20150529
  Serious: No
  Sender: FDA-Public Use
  Company Number: PHHY2014MX020425

PATIENT
  Age: 60 Year
  Sex: Male

DRUGS (4)
  1. VIMPAT [Concomitant]
     Active Substance: LACOSAMIDE
     Indication: NERVOUS SYSTEM DISORDER
     Dosage: 2 DF, DAILY
     Route: 065
     Dates: start: 201302
  2. TEGRETOL [Suspect]
     Active Substance: CARBAMAZEPINE
     Dosage: 9 DF, DAILY
     Route: 065
  3. TEGRETOL [Suspect]
     Active Substance: CARBAMAZEPINE
     Indication: SEIZURE
     Dosage: 10 DF, DAILY
     Route: 065
     Dates: start: 20140214
  4. KEPPRA [Concomitant]
     Active Substance: LEVETIRACETAM
     Indication: SEIZURE
     Dosage: 3.5 G, DAILY
     Route: 065
     Dates: start: 200902

REACTIONS (8)
  - Dysstasia [Recovered/Resolved]
  - Speech disorder [Recovered/Resolved]
  - Asthenia [Recovered/Resolved]
  - Eye disorder [Recovered/Resolved]
  - Feeling abnormal [Recovered/Resolved]
  - Sedation [Recovered/Resolved]
  - Somnolence [Recovered/Resolved]
  - Malaise [Recovered/Resolved]

NARRATIVE: CASE EVENT DATE: 20140214
